FAERS Safety Report 4965065-7 (Version None)
Quarter: 2006Q1

REPORT INFORMATION
  Report Type: 
  Country: None (occurrence: None)
  Receive Date: 20060130
  Receipt Date: 20051004
  Transmission Date: 20060701
  Serious: No
  Sender: FDA-Public Use
  Company Number: COT_0197_2005

PATIENT
  Age: 42 Year
  Sex: Female
  Weight: 68.0396 kg

DRUGS (10)
  1. VENTAVIS [Suspect]
     Indication: PULMONARY HYPERTENSION
     Dosage: 5 MCG 6TO9X/DAY IH
     Route: 055
     Dates: start: 20050613
  2. VENTAVIS [Suspect]
     Indication: PULMONARY HYPERTENSION
     Dosage: 2.5 MCG ONCE IH
     Route: 055
     Dates: start: 20050613, end: 20050613
  3. PREDNISONE [Concomitant]
  4. AZATHIOPRINE [Concomitant]
  5. NORVASC [Concomitant]
  6. IBUPROFEN [Concomitant]
  7. TRACLEER [Concomitant]
  8. BACTRIM DS [Concomitant]
  9. NEXIUM [Concomitant]
  10. ENBREL [Concomitant]

REACTIONS (1)
  - DYSGEUSIA [None]
